FAERS Safety Report 18593190 (Version 1)
Quarter: 2020Q4

REPORT INFORMATION
  Report Type: Other
  Country: CA (occurrence: CA)
  Receive Date: 20201208
  Receipt Date: 20201208
  Transmission Date: 20210114
  Serious: Yes (Other)
  Sender: FDA-Public Use
  Company Number: CA-INTERCEPT-PM2020002423

PATIENT
  Sex: Female

DRUGS (2)
  1. OCALIVA [Suspect]
     Active Substance: OBETICHOLIC ACID
     Dosage: 5 MILLIGRAM, 2X/WK
     Route: 048
     Dates: start: 20190123
  2. OCALIVA [Suspect]
     Active Substance: OBETICHOLIC ACID
     Dosage: 5 MILLIGRAM, QD
     Route: 048

REACTIONS (8)
  - Loss of personal independence in daily activities [Unknown]
  - Portal hypertension [Unknown]
  - Stress [Unknown]
  - Illness [Unknown]
  - Psychological abuse [Unknown]
  - Verbal abuse [Unknown]
  - Hepatic cirrhosis [Unknown]
  - Asthenia [Unknown]

NARRATIVE: CASE EVENT DATE: 2019
